FAERS Safety Report 21027483 (Version 2)
Quarter: 2024Q4

REPORT INFORMATION
  Report Type: Spontaneous
  Country: US (occurrence: US)
  Receive Date: 20220630
  Receipt Date: 20241211
  Transmission Date: 20250115
  Serious: No
  Sender: PFIZER
  Company Number: US-PFIZER INC-PV202200011458

PATIENT
  Age: 79 Year
  Sex: Female

DRUGS (1)
  1. VYNDAMAX [Suspect]
     Active Substance: TAFAMIDIS
     Indication: Amyloidosis
     Dosage: TAKE 1 CAPSULE EVERY DAY BY ORAL
     Route: 048

REACTIONS (1)
  - Therapeutic response unexpected [Unknown]
